FAERS Safety Report 5562792-8 (Version None)
Quarter: 2007Q4

REPORT INFORMATION
  Report Type: 
  Country: None (occurrence: None)
  Receive Date: 20071212
  Receipt Date: 20071212
  Transmission Date: 20080405
  Serious: Yes (Other)
  Sender: FDA-Public Use
  Company Number: None

PATIENT
  Age: 55 Year
  Sex: Male
  Weight: 131.5431 kg

DRUGS (1)
  1. EXFORGE [Suspect]
     Indication: HYPERTENSION
     Dosage: 5/320 1 DAILY
     Dates: start: 20071011, end: 20071126

REACTIONS (5)
  - IMPAIRED DRIVING ABILITY [None]
  - LACRIMATION INCREASED [None]
  - OCULAR DISCOMFORT [None]
  - PHOTOPHOBIA [None]
  - VISUAL DISTURBANCE [None]
